FAERS Safety Report 25389379 (Version 1)
Quarter: 2025Q2

REPORT INFORMATION
  Report Type: Spontaneous
  Country: US (occurrence: None)
  Receive Date: 20250602
  Receipt Date: 20250602
  Transmission Date: 20250717
  Serious: No
  Sender: FDA-CTU
  Company Number: None

PATIENT
  Age: 82 Year
  Sex: Male

DRUGS (1)
  1. CEFEPIME HYDROCHLORIDE [Suspect]
     Active Substance: CEFEPIME HYDROCHLORIDE
     Indication: Osteomyelitis
     Dates: end: 20250408

REACTIONS (5)
  - Confusional state [None]
  - Dizziness [None]
  - Myoclonus [None]
  - Parkinsonism [None]
  - Tremor [None]

NARRATIVE: CASE EVENT DATE: 20250408
